FAERS Safety Report 10101450 (Version 3)
Quarter: 2014Q2

REPORT INFORMATION
  Report Type: Report from Study
  Country: BE (occurrence: BE)
  Receive Date: 20140424
  Receipt Date: 20140515
  Transmission Date: 20141212
  Serious: Yes (Other)
  Sender: FDA-Public Use
  Company Number: BE-BAYER-2014-056859

PATIENT
  Age: 64 Year
  Sex: Female

DRUGS (2)
  1. REGORAFENIB [Suspect]
     Indication: COLORECTAL CANCER METASTATIC
     Dosage: 160 MG, (4 X 40 MG) QD
     Route: 048
     Dates: start: 20140311, end: 20140331
  2. REGORAFENIB [Suspect]
     Indication: COLORECTAL CANCER METASTATIC
     Dosage: 120 MG, (3 X 40 MG) QD
     Route: 048
     Dates: start: 20140409, end: 20140422

REACTIONS (1)
  - Deep vein thrombosis [Recovered/Resolved]
